FAERS Safety Report 9856746 (Version 1)
Quarter: 2014Q1

REPORT INFORMATION
  Report Type: Report from Study
  Country: US (occurrence: US)
  Receive Date: 20140130
  Receipt Date: 20140130
  Transmission Date: 20141002
  Serious: Yes (Hospitalization, Other)
  Sender: FDA-Public Use
  Company Number: US-ABBVIE-14P-163-1193366-00

PATIENT
  Age: 38 Year
  Sex: Male
  Weight: 79.45 kg

DRUGS (3)
  1. HUMIRA [Suspect]
     Indication: PSORIASIS
     Dates: end: 201212
  2. HUMIRA [Suspect]
     Indication: PSORIATIC ARTHROPATHY
     Dates: end: 2013
  3. INSULIN [Concomitant]
     Indication: DIABETES MELLITUS

REACTIONS (13)
  - Skin ulcer [Recovered/Resolved]
  - Pain in extremity [Recovered/Resolved]
  - Localised infection [Recovered/Resolved]
  - Localised infection [Recovered/Resolved]
  - Skin ulcer [Recovered/Resolved]
  - Localised infection [Recovered/Resolved]
  - Psoriasis [Not Recovered/Not Resolved]
  - Arthralgia [Not Recovered/Not Resolved]
  - Appendicitis [Recovered/Resolved]
  - Arthralgia [Recovered/Resolved]
  - Depression [Not Recovered/Not Resolved]
  - Psoriatic arthropathy [Not Recovered/Not Resolved]
  - Diabetes mellitus inadequate control [Unknown]
